FAERS Safety Report 9535902 (Version 2)
Quarter: 2013Q4

REPORT INFORMATION
  Report Type: Spontaneous
  Country: US (occurrence: US)
  Receive Date: 20130919
  Receipt Date: 20131114
  Transmission Date: 20140711
  Serious: Yes (Hospitalization, Other)
  Sender: FDA-Public Use
  Company Number: US-BAXTER-2013BAX036085

PATIENT
  Age: 71 Year
  Sex: Female

DRUGS (3)
  1. DIANEAL LOW CALCIUM [Suspect]
     Indication: RENAL FAILURE CHRONIC
     Route: 033
     Dates: start: 201302
  2. DIANEAL LOW CALCIUM [Suspect]
     Indication: RENAL FAILURE CHRONIC
     Route: 033
     Dates: start: 201302
  3. DIANEAL LOW CALCIUM [Suspect]
     Indication: RENAL FAILURE CHRONIC
     Route: 033
     Dates: start: 201302

REACTIONS (5)
  - Urinary tract infection [Recovering/Resolving]
  - Cystitis [Recovering/Resolving]
  - Bacterial infection [Recovering/Resolving]
  - Tibia fracture [Recovering/Resolving]
  - Fall [Unknown]
